FAERS Safety Report 6812287-6 (Version None)
Quarter: 2010Q3

REPORT INFORMATION
  Report Type: 
  Country: None (occurrence: None)
  Receive Date: 20100701
  Receipt Date: 20100618
  Transmission Date: 20110219
  Serious: Yes (Hospitalization)
  Sender: FDA-Public Use
  Company Number: PHHY2010AU25672

PATIENT
  Sex: Male

DRUGS (1)
  1. CLOZARIL [Suspect]
     Dosage: 650 MG
     Dates: start: 20050922

REACTIONS (3)
  - ABSCESS LIMB [None]
  - EYE ABSCESS [None]
  - EYE OPERATION [None]
